FAERS Safety Report 7962514-7 (Version None)
Quarter: 2011Q4

REPORT INFORMATION
  Report Type: 
  Country: None (occurrence: None)
  Receive Date: 20111207
  Receipt Date: 20111205
  Transmission Date: 20120403
  Serious: Yes (Other)
  Sender: FDA-Public Use
  Company Number: US-GLAXOSMITHKLINE-A0956690A

PATIENT
  Age: 15 Year
  Sex: Male

DRUGS (6)
  1. LAMICTAL [Suspect]
     Indication: BIPOLAR DISORDER
     Dosage: 25MG PER DAY
     Route: 048
     Dates: start: 20111203
  2. AMITRIPTYLINE HCL [Concomitant]
  3. BUPROPION HCL [Suspect]
     Indication: BIPOLAR DISORDER
     Dosage: 75MG PER DAY
     Route: 048
     Dates: start: 20100101, end: 20100101
  4. AMBIEN CR [Concomitant]
  5. PROZAC [Concomitant]
  6. LITHIUM [Concomitant]

REACTIONS (3)
  - VIOLENCE-RELATED SYMPTOM [None]
  - AGGRESSION [None]
  - BURNING SENSATION [None]
